FAERS Safety Report 16623120 (Version 1)
Quarter: 2019Q3

REPORT INFORMATION
  Report Type: Spontaneous
  Country: DE (occurrence: DE)
  Receive Date: 20190724
  Receipt Date: 20190724
  Transmission Date: 20191004
  Serious: Yes (Hospitalization)
  Sender: FDA-Public Use
  Company Number: DE-TEVA-2019-DE-1080270

PATIENT
  Age: 64 Year
  Sex: Male

DRUGS (11)
  1. CISPLATIN. [Suspect]
     Active Substance: CISPLATIN
     Dosage: 600 MG, NK; SINCE JANUARY 16, 2018
  2. MIRTAZAPIN [Concomitant]
     Active Substance: MIRTAZAPINE
     Dosage: 15 MG, 0-0-1-0
  3. RAMIPRIL. [Concomitant]
     Active Substance: RAMIPRIL
     Dosage: 5 MG, 1-0-1-0
  4. METAMIZOL [Concomitant]
     Active Substance: METAMIZOLE SODIUM
     Dosage: NK MG, 40-40-40-0, TROPFEN
  5. PANTOPRAZOL [Concomitant]
     Active Substance: PANTOPRAZOLE SODIUM
     Dosage: 40 MG, 0-0-1-0
  6. INSULIN DETEMIR [Concomitant]
     Active Substance: INSULIN DETEMIR
     Dosage: 6 IU, 0-0-1-0
  7. TORASEMID [Concomitant]
     Active Substance: TORSEMIDE
     Dosage: 10 MG, 1-0-0-0
  8. NITRENDIPIN [Concomitant]
     Active Substance: NITRENDIPINE
     Dosage: 20 MG, 1-0-1-0
  9. BISOPROLOL [Concomitant]
     Active Substance: BISOPROLOL
     Dosage: 2.5 MG, 1-0-1-0
  10. FENTANYL. [Concomitant]
     Active Substance: FENTANYL
     Dosage: 150 MICROGRAMS/H, CHANGE EVERY 3 D, TRANSDERMAL PLASTER
     Route: 062
  11. GEMCITABINE. [Suspect]
     Active Substance: GEMCITABINE
     Dosage: 60 MG, NK; SINCE JANUARY 16, 2018

REACTIONS (1)
  - General physical health deterioration [Unknown]

NARRATIVE: CASE EVENT DATE: 20180212
